FAERS Safety Report 7883188-X (Version None)
Quarter: 2011Q4

REPORT INFORMATION
  Report Type: 
  Country: None (occurrence: None)
  Receive Date: 20111101
  Receipt Date: 20111101
  Transmission Date: 20120403
  Serious: Yes (Hospitalization)
  Sender: FDA-Public Use
  Company Number: None

PATIENT
  Age: 64 Year
  Sex: Male
  Weight: 87.7 kg

DRUGS (2)
  1. FLUCONAZOLE [Suspect]
     Indication: PANCREATITIS
     Dosage: 400 MG EVERY DAY IV
     Route: 042
     Dates: start: 20110806, end: 20110820
  2. PANTOPRAZOLE [Suspect]
     Indication: GASTROOESOPHAGEAL REFLUX DISEASE
     Dosage: 40 MG EVERY DAY IV
     Route: 042
     Dates: start: 20110812, end: 20110822

REACTIONS (3)
  - TOXICITY TO VARIOUS AGENTS [None]
  - NEUTROPENIA [None]
  - LEUKOPENIA [None]
